FAERS Safety Report 23397253 (Version 2)
Quarter: 2024Q1

REPORT INFORMATION
  Report Type: Spontaneous
  Country: BE (occurrence: BE)
  Receive Date: 20240112
  Receipt Date: 20240207
  Transmission Date: 20240409
  Serious: Yes (Other)
  Sender: FDA-Public Use
  Company Number: BE-ELI_LILLY_AND_COMPANY-BE202401001937

PATIENT
  Age: 81 Year
  Sex: Male
  Weight: 72 kg

DRUGS (3)
  1. RETEVMO [Suspect]
     Active Substance: SELPERCATINIB
     Indication: Medullary thyroid cancer
     Dosage: 160 MG, BID
     Route: 048
     Dates: start: 20230119, end: 20231220
  2. RETEVMO [Suspect]
     Active Substance: SELPERCATINIB
     Dosage: 80 MG, BID
     Route: 048
     Dates: start: 20240110
  3. RETEVMO [Suspect]
     Active Substance: SELPERCATINIB
     Dosage: 40 MG, BID
     Route: 048

REACTIONS (24)
  - Renal failure [Unknown]
  - Red blood cell count decreased [Unknown]
  - Red cell distribution width increased [Unknown]
  - Mean cell haemoglobin concentration increased [Unknown]
  - Neutrophil count increased [Unknown]
  - Immature granulocyte count increased [Unknown]
  - Immature platelet fraction increased [Unknown]
  - Transferrin saturation decreased [Unknown]
  - C-reactive protein increased [Unknown]
  - Blood phosphorus increased [Unknown]
  - Blood glucose decreased [Unknown]
  - Blood lactate dehydrogenase increased [Unknown]
  - Blood thyroid stimulating hormone decreased [Unknown]
  - Thyroxine increased [Unknown]
  - Tri-iodothyronine decreased [Unknown]
  - Blood parathyroid hormone decreased [Unknown]
  - Blood calcitonin increased [Unknown]
  - Carcinoembryonic antigen increased [Unknown]
  - Hypertension [Recovered/Resolved]
  - Aspartate aminotransferase increased [Unknown]
  - Blood calcium decreased [Unknown]
  - Lymphocyte count decreased [Unknown]
  - Lymphocyte count decreased [Unknown]
  - Platelet count decreased [Unknown]
